FAERS Safety Report 9275129 (Version 1)
Quarter: 2013Q2

REPORT INFORMATION
  Report Type: Spontaneous
  Country: US (occurrence: None)
  Receive Date: 20130501
  Receipt Date: 20130501
  Transmission Date: 20140414
  Serious: Yes (Hospitalization)
  Sender: FDA-Public Use
  Company Number: None

PATIENT
  Sex: Female
  Weight: 98 kg

DRUGS (11)
  1. DAPSONE [Suspect]
     Indication: ANTIFUNGAL PROPHYLAXIS
     Route: 048
     Dates: start: 20121211, end: 20130419
  2. ACYCLOVIR [Concomitant]
  3. AMLODIPINE [Concomitant]
  4. CALCIUM CARBONATE-VITAMIN D2 [Concomitant]
  5. RESTASIS [Concomitant]
  6. MAGNESIUM OXIDE [Concomitant]
  7. XOYCODONE [Concomitant]
  8. POSACONAZOLE [Concomitant]
  9. RANITIDINE [Concomitant]
  10. ONDANSETRON [Concomitant]
  11. AUGMENTIN [Concomitant]

REACTIONS (7)
  - Hypoxia [None]
  - Methaemoglobinaemia [None]
  - Transaminases increased [None]
  - Blood bilirubin increased [None]
  - Lung infiltration [None]
  - Viral infection [None]
  - Graft versus host disease [None]
